FAERS Safety Report 8019498-5 (Version None)
Quarter: 2012Q1

REPORT INFORMATION
  Report Type: 
  Country: None (occurrence: None)
  Receive Date: 20120103
  Receipt Date: 20120103
  Transmission Date: 20120608
  Serious: Yes (Death)
  Sender: FDA-Public Use
  Company Number: PHHY2011AU103038

PATIENT
  Sex: Male

DRUGS (3)
  1. ZOLEDRONOC ACID [Suspect]
     Dosage: 5 MG, YEARLY
     Route: 042
     Dates: start: 20081210
  2. HALOPERIDOL [Concomitant]
  3. ZOLEDRONOC ACID [Suspect]
     Dosage: 5 MG, YEARLY
     Route: 042
     Dates: start: 20100122

REACTIONS (2)
  - DEMENTIA [None]
  - PNEUMONIA ASPIRATION [None]
